FAERS Safety Report 13256839 (Version 1)
Quarter: 2017Q1

REPORT INFORMATION
  Report Type: Spontaneous
  Country: US (occurrence: US)
  Receive Date: 20170221
  Receipt Date: 20170221
  Transmission Date: 20170428
  Serious: Yes (Other)
  Sender: FDA-Public Use
  Company Number: US-SUPERNUS PHARMACEUTICALS, INC.-2017SUP00026

PATIENT
  Age: 46 Year
  Sex: Female
  Weight: 64.4 kg

DRUGS (12)
  1. DIGESTIVE ENZYME [Concomitant]
     Active Substance: UNSPECIFIED INGREDIENT
  2. OXTELLAR XR [Suspect]
     Active Substance: OXCARBAZEPINE
     Indication: MENINGIOMA
  3. OXTELLAR XR [Suspect]
     Active Substance: OXCARBAZEPINE
     Indication: PARTIAL SEIZURES
     Dosage: 300 MG, 1X/DAY
     Dates: start: 20170202
  4. MVI [Concomitant]
     Active Substance: VITAMINS
  5. VITAMIN D [Concomitant]
     Active Substance: CHOLECALCIFEROL
  6. ANTIOXIDANT [Concomitant]
     Active Substance: UNSPECIFIED INGREDIENT
  7. PROFLAVANOL [Concomitant]
  8. ZOFRAN [Concomitant]
     Active Substance: ONDANSETRON HYDROCHLORIDE
  9. FISH OIL [Concomitant]
     Active Substance: FISH OIL
  10. OXTELLAR XR [Suspect]
     Active Substance: OXCARBAZEPINE
     Indication: MENINGIOMA
     Dosage: 1200 MG, 1X/DAY
     Dates: start: 20170202
  11. OXTELLAR XR [Suspect]
     Active Substance: OXCARBAZEPINE
     Indication: PARTIAL SEIZURES
     Dosage: 1200 MG, 1X/DAY
     Route: 048
     Dates: start: 20170115, end: 20170201
  12. IMITREX [Concomitant]
     Active Substance: SUMATRIPTAN SUCCINATE

REACTIONS (13)
  - Blindness transient [Recovered/Resolved]
  - Headache [Recovered/Resolved]
  - Nausea [Recovered/Resolved]
  - Diplopia [Recovered/Resolved]
  - Visual impairment [Recovered/Resolved]
  - Dizziness [Recovered/Resolved]
  - Gait disturbance [Recovered/Resolved]
  - Drug effect decreased [Recovered/Resolved]
  - Balance disorder [Recovered/Resolved]
  - Coordination abnormal [Recovered/Resolved]
  - Seizure [Recovered/Resolved]
  - Dysarthria [Recovered/Resolved]
  - Disorientation [Recovered/Resolved]

NARRATIVE: CASE EVENT DATE: 201701
